FAERS Safety Report 17575021 (Version 10)
Quarter: 2022Q2

REPORT INFORMATION
  Report Type: Report from Study
  Country: GB (occurrence: GB)
  Receive Date: 20200324
  Receipt Date: 20220630
  Transmission Date: 20220721
  Serious: Yes (Congenital Anomaly, Other)
  Sender: FDA-Public Use
  Company Number: GB-AUROBINDO-AUR-APL-2020-015464

PATIENT
  Sex: Male

DRUGS (7)
  1. NEVIRAPINE [Suspect]
     Active Substance: NEVIRAPINE
     Indication: HIV infection
     Dosage: 400 MILLIGRAM, ONCE A DAY
     Route: 064
  2. TRUVADA [Suspect]
     Active Substance: EMTRICITABINE\TENOFOVIR DISOPROXIL FUMARATE
     Indication: HIV infection
     Dosage: 1 DOSAGE FORM (MATERNAL DOSE 1 DF )
     Route: 064
  3. EMTRICITABINE\TENOFOVIR [Suspect]
     Active Substance: EMTRICITABINE\TENOFOVIR
     Indication: Product used for unknown indication
     Dosage: 400 MILLIGRAM
     Route: 064
  4. EMTRICITABINE\TENOFOVIR [Suspect]
     Active Substance: EMTRICITABINE\TENOFOVIR
     Dosage: 1 DOSAGE FORM MATERNAL DOSE: (1 DOSAGE FORM)
     Route: 064
  5. NEVIRAPINE EXTENDED RELEASE [Suspect]
     Active Substance: NEVIRAPINE
     Dosage: 400 MILLIGRAM, ONCE A DAY (MATERNAL DOSE: 400 MG/DAY)
     Route: 064
  6. LOPINAVIR\RITONAVIR [Suspect]
     Active Substance: LOPINAVIR\RITONAVIR
     Indication: Product used for unknown indication
     Dosage: PRIOR TO CONCEPTION
     Route: 064
  7. VIRAMUNE [Suspect]
     Active Substance: NEVIRAPINE
     Indication: Product used for unknown indication
     Dosage: 400 MILLIGRAM, ONCE A DAY (DOSE 3)
     Route: 064

REACTIONS (4)
  - Speech disorder [Unknown]
  - Developmental delay [Unknown]
  - Foetal exposure during pregnancy [Recovered/Resolved]
  - Speech disorder developmental [Unknown]
